FAERS Safety Report 6286711-4 (Version None)
Quarter: 2009Q3

REPORT INFORMATION
  Report Type: 
  Country: None (occurrence: None)
  Receive Date: 20090724
  Receipt Date: 20090713
  Transmission Date: 20100115
  Serious: Yes (Other)
  Sender: FDA-Public Use
  Company Number: 1000007619

PATIENT
  Age: 33 Year
  Sex: Female
  Weight: 60 kg

DRUGS (3)
  1. CITALOPRAM HYDROBROMIDE [Suspect]
     Dosage: (400 MG, ONCE), ORAL; ORAL
     Route: 048
     Dates: start: 20090713, end: 20090713
  2. DOMINAL [Suspect]
     Dosage: (ONCE), ORAL
     Route: 048
     Dates: start: 20090713, end: 20090713
  3. ALCOHOL [Suspect]
     Dosage: (1 LIT, ONCE), ORAL
     Route: 048
     Dates: start: 20090713, end: 20090713

REACTIONS (6)
  - AGITATION [None]
  - HYPOTENSION [None]
  - INTENTIONAL OVERDOSE [None]
  - MYDRIASIS [None]
  - SUICIDE ATTEMPT [None]
  - VOMITING [None]
